FAERS Safety Report 12350850 (Version 1)
Quarter: 2016Q2

REPORT INFORMATION
  Report Type: Spontaneous
  Country: NO (occurrence: NO)
  Receive Date: 20160510
  Receipt Date: 20160510
  Transmission Date: 20160815
  Serious: Yes (Hospitalization)
  Sender: FDA-Public Use
  Company Number: NO-NOVOPROD-490050

PATIENT
  Age: 63 Year
  Sex: Female

DRUGS (3)
  1. MANNITOL. [Suspect]
     Active Substance: MANNITOL
     Indication: DIAGNOSTIC PROCEDURE
     Dosage: 150 MG/ML
     Route: 048
     Dates: start: 20160414, end: 20160414
  2. OMNISCAN [Suspect]
     Active Substance: GADODIAMIDE
     Indication: DIAGNOSTIC PROCEDURE
     Dosage: 0,5 MMOL/ML
     Route: 042
     Dates: start: 20160414, end: 20160414
  3. GLUCAGON. [Suspect]
     Active Substance: GLUCAGON
     Indication: DIAGNOSTIC PROCEDURE
     Dosage: 0.5 ML, QD
     Route: 042
     Dates: start: 20160414, end: 20160414

REACTIONS (6)
  - Nausea [Unknown]
  - Malaise [Unknown]
  - Vomiting [Unknown]
  - Chills [Unknown]
  - Muscular weakness [Unknown]
  - Dizziness [Unknown]

NARRATIVE: CASE EVENT DATE: 20160414
